FAERS Safety Report 10099118 (Version 1)
Quarter: 2014Q2

REPORT INFORMATION
  Report Type: Spontaneous
  Country: US (occurrence: None)
  Receive Date: 20140422
  Receipt Date: 20140422
  Transmission Date: 20141212
  Serious: Yes (Other)
  Sender: FDA-Public Use
  Company Number: None

PATIENT
  Age: 84 Year
  Sex: Female
  Weight: 63.5 kg

DRUGS (1)
  1. LUCENTIS [Suspect]
     Indication: AGE-RELATED MACULAR DEGENERATION
     Dosage: 1 VIAL MONTHLY INTO THE EYE
     Route: 047
     Dates: start: 20140417, end: 20140417

REACTIONS (3)
  - Migraine [None]
  - Asthenia [None]
  - Confusional state [None]
